FAERS Safety Report 25161727 (Version 1)
Quarter: 2025Q2

REPORT INFORMATION
  Report Type: Spontaneous
  Country: US (occurrence: US)
  Receive Date: 20250404
  Receipt Date: 20250404
  Transmission Date: 20250717
  Serious: No
  Sender: Haleon PLC
  Company Number: US-HALEON-2235908

PATIENT

DRUGS (1)
  1. FLONASE ALLERGY RELIEF [Suspect]
     Active Substance: FLUTICASONE PROPIONATE
     Indication: Ear disorder

REACTIONS (7)
  - Ear pain [Recovering/Resolving]
  - Seasonal allergy [Recovering/Resolving]
  - Paranasal sinus discomfort [Recovering/Resolving]
  - Product use in unapproved indication [Unknown]
  - Nasal congestion [Not Recovered/Not Resolved]
  - Sinus headache [Recovering/Resolving]
  - Throat irritation [Recovering/Resolving]
